FAERS Safety Report 15703117 (Version 1)
Quarter: 2018Q4

REPORT INFORMATION
  Report Type: Report from Study
  Country: US (occurrence: US)
  Receive Date: 20181210
  Receipt Date: 20181210
  Transmission Date: 20190205
  Serious: Yes (Other)
  Sender: FDA-Public Use
  Company Number: US-ROCHE-1762666

PATIENT

DRUGS (2)
  1. VEMURAFENIB. [Suspect]
     Active Substance: VEMURAFENIB
     Indication: MALIGNANT MELANOMA
     Route: 048
  2. XL888 (HSP90 INHIBITOR) [Suspect]
     Active Substance: INVESTIGATIONAL PRODUCT
     Indication: MALIGNANT MELANOMA
     Dosage: DOSE: 30, 45, 90 OR 135 MG
     Route: 048

REACTIONS (16)
  - Diarrhoea [Unknown]
  - Fatigue [Unknown]
  - Aspartate aminotransferase increased [Unknown]
  - Amylase increased [Unknown]
  - Rash maculo-papular [Unknown]
  - Basal cell carcinoma [Unknown]
  - Muscular weakness [Unknown]
  - Nausea [Unknown]
  - Alanine aminotransferase increased [Unknown]
  - Electrocardiogram QT prolonged [Unknown]
  - Hyponatraemia [Unknown]
  - Lipase increased [Unknown]
  - Arthralgia [Unknown]
  - Headache [Unknown]
  - Pancreatitis [Unknown]
  - Rash morbilliform [Unknown]
